FAERS Safety Report 14018470 (Version 1)
Quarter: 2017Q3

REPORT INFORMATION
  Report Type: Spontaneous
  Country: US (occurrence: US)
  Receive Date: 20170928
  Receipt Date: 20170928
  Transmission Date: 20171128
  Serious: Yes (Other)
  Sender: FDA-Public Use
  Company Number: US-BRISTOL-MYERS SQUIBB COMPANY-BMS-2017-085124

PATIENT
  Sex: Female

DRUGS (1)
  1. OPDIVO [Suspect]
     Active Substance: NIVOLUMAB
     Indication: LUNG ADENOCARCINOMA STAGE III
     Dosage: 240 MG, Q2WK
     Route: 042

REACTIONS (4)
  - Autoimmune nephritis [Unknown]
  - Pulmonary oedema [Unknown]
  - Malignant neoplasm progression [Unknown]
  - Rash [Unknown]
